FAERS Safety Report 10983292 (Version 1)
Quarter: 2015Q2

REPORT INFORMATION
  Report Type: Spontaneous
  Country: US (occurrence: US)
  Receive Date: 20150403
  Receipt Date: 20150403
  Transmission Date: 20150821
  Serious: No
  Sender: FDA-Public Use
  Company Number: US-PFIZER INC-2015113356

PATIENT
  Sex: Female

DRUGS (1)
  1. DEPO-PROVERA [Suspect]
     Active Substance: MEDROXYPROGESTERONE ACETATE
     Dosage: UNK

REACTIONS (7)
  - Breast pain [Unknown]
  - Back pain [Unknown]
  - Nausea [Unknown]
  - Menorrhagia [Unknown]
  - Breast discharge [Unknown]
  - Fatigue [Unknown]
  - Asthenia [Unknown]
